FAERS Safety Report 4471492-7 (Version None)
Quarter: 2004Q4

REPORT INFORMATION
  Report Type: 
  Country: None (occurrence: None)
  Receive Date: 20041008
  Receipt Date: 20041008
  Transmission Date: 20050328
  Serious: No
  Sender: FDA-Public Use
  Company Number: None

PATIENT
  Age: 30 Year
  Sex: Female

DRUGS (1)
  1. SEROQUEL [Suspect]
     Indication: DEPRESSION
     Dosage: 25 MG ONCE ORAL
     Route: 048
     Dates: start: 20041006, end: 20041006

REACTIONS (3)
  - DIZZINESS [None]
  - MUSCLE TWITCHING [None]
  - SOMNOLENCE [None]
